FAERS Safety Report 16828054 (Version 1)
Quarter: 2019Q3

REPORT INFORMATION
  Report Type: Spontaneous
  Country: CN (occurrence: CN)
  Receive Date: 20190919
  Receipt Date: 20190919
  Transmission Date: 20191005
  Serious: Yes (Other)
  Sender: FDA-Public Use
  Company Number: CN-ASTRAZENECA-2019SF31325

PATIENT
  Age: 22722 Day
  Sex: Male
  Weight: 70 kg

DRUGS (3)
  1. BUTYLPHTHALIDE SODIUM CHLORIDE [Suspect]
     Active Substance: BUTYLPHTHALIDE
     Indication: PROPHYLAXIS
     Route: 041
     Dates: start: 20190723, end: 20190729
  2. BICUN [Suspect]
     Active Substance: EDARAVONE
     Indication: ANTIOXIDANT THERAPY
     Route: 041
     Dates: start: 20190723, end: 20190729
  3. ROSUVASTATIN CALCIUM. [Suspect]
     Active Substance: ROSUVASTATIN CALCIUM
     Indication: LIPIDS ABNORMAL
     Route: 048
     Dates: start: 20190721, end: 20190730

REACTIONS (1)
  - Drug-induced liver injury [Recovered/Resolved]

NARRATIVE: CASE EVENT DATE: 20190729
